FAERS Safety Report 8465698-X (Version None)
Quarter: 2012Q2

REPORT INFORMATION
  Report Type: 
  Country: None (occurrence: None)
  Receive Date: 20120620
  Receipt Date: 20120620
  Transmission Date: 20120825
  Serious: Yes (Hospitalization)
  Sender: FDA-Public Use
  Company Number: None

PATIENT
  Sex: Male
  Weight: 112.4921 kg

DRUGS (1)
  1. LEVAQUIN [Suspect]
     Dosage: 1 PER DAY

REACTIONS (5)
  - GAIT DISTURBANCE [None]
  - MALAISE [None]
  - DYSSTASIA [None]
  - MONOPLEGIA [None]
  - IMPAIRED WORK ABILITY [None]
